FAERS Safety Report 5437162-3 (Version None)
Quarter: 2007Q3

REPORT INFORMATION
  Report Type: 
  Country: None (occurrence: None)
  Receive Date: 20070831
  Receipt Date: 20070827
  Transmission Date: 20080115
  Serious: Yes (Other)
  Sender: FDA-Public Use
  Company Number: BR-ASTRAZENECA-2007UW19794

PATIENT
  Age: 49 Year
  Sex: Female
  Weight: 65 kg

DRUGS (2)
  1. NOLVADEX [Suspect]
     Indication: BREAST CANCER FEMALE
     Route: 048
     Dates: start: 20070414, end: 20070614
  2. NOLVADEX [Suspect]
     Route: 048
     Dates: start: 20070822

REACTIONS (4)
  - ABDOMINAL PAIN [None]
  - CYSTITIS [None]
  - INGUINAL HERNIA [None]
  - PELVIC PAIN [None]
